FAERS Safety Report 5293978-8 (Version None)
Quarter: 2007Q2

REPORT INFORMATION
  Report Type: 
  Country: None (occurrence: None)
  Receive Date: 20070405
  Receipt Date: 20070323
  Transmission Date: 20071010
  Serious: Yes (Other)
  Sender: FDA-Public Use
  Company Number: AZAUS200700041

PATIENT
  Age: 47 Year
  Sex: Female
  Weight: 61.4 kg

DRUGS (6)
  1. VIDAZA [Suspect]
     Indication: MYELODYSPLASTIC SYNDROME
     Dosage: 40 MG/M2 (DAYS 1 TO 10, EVERY 28 DAYS), SUBCUTANEOUS
     Route: 058
     Dates: start: 20061218, end: 20061227
  2. MS-275 (INVESTIGATIONAL HISTONE DEACETYLASE INHIBITOR) (INVESTIGATIONA [Suspect]
     Indication: MYELODYSPLASTIC SYNDROME
     Dosage: 4 MG/M2 (DAYS 3 AND 10, EVERY 28 DAYS), ORAL
     Route: 048
     Dates: start: 20061220, end: 20061227
  3. MEGACE [Suspect]
     Indication: DECREASED APPETITE
     Dates: start: 20061110, end: 20061117
  4. ATIVAN [Concomitant]
  5. VFEND [Concomitant]
  6. CASPOFUNGIN (CASPOFUNGIN) [Concomitant]

REACTIONS (5)
  - DECREASED APPETITE [None]
  - FUNGAL INFECTION [None]
  - HEPATIC INFECTION [None]
  - LUNG NEOPLASM [None]
  - PULMONARY EMBOLISM [None]
